FAERS Safety Report 9899190 (Version 1)
Quarter: 2014Q1

REPORT INFORMATION
  Report Type: Spontaneous
  Country: ES (occurrence: ES)
  Receive Date: 20140214
  Receipt Date: 20140214
  Transmission Date: 20141002
  Serious: Yes (Other)
  Sender: FDA-Public Use
  Company Number: ES-CELGENEUS-144-50794-14020037

PATIENT
  Sex: Male

DRUGS (1)
  1. VIDAZA [Suspect]
     Indication: MYELODYSPLASTIC SYNDROME
     Route: 065
     Dates: start: 201201

REACTIONS (5)
  - Arthritis bacterial [Unknown]
  - Dermatitis exfoliative [Recovering/Resolving]
  - Psoriasis [Unknown]
  - Juvenile idiopathic arthritis [Recovering/Resolving]
  - Rash maculo-papular [Unknown]
